FAERS Safety Report 20667765 (Version 13)
Quarter: 2025Q1

REPORT INFORMATION
  Report Type: Spontaneous
  Country: FR (occurrence: FR)
  Receive Date: 20220404
  Receipt Date: 20250225
  Transmission Date: 20250408
  Serious: Yes (Hospitalization, Other)
  Sender: ADVANZ PHARMA
  Company Number: FR-Concordia Pharmaceuticals Inc.-GSH201703-001429

PATIENT

DRUGS (38)
  1. HYDROXYCHLOROQUINE SULFATE [Interacting]
     Active Substance: HYDROXYCHLOROQUINE SULFATE
     Indication: Chronic cutaneous lupus erythematosus
     Route: 065
     Dates: start: 201512, end: 201606
  2. HYDROXYCHLOROQUINE SULFATE [Interacting]
     Active Substance: HYDROXYCHLOROQUINE SULFATE
     Route: 065
     Dates: start: 20160928, end: 20161106
  3. HYDROXYCHLOROQUINE SULFATE [Interacting]
     Active Substance: HYDROXYCHLOROQUINE SULFATE
     Dates: start: 20161107, end: 201611
  4. HYDROXYCHLOROQUINE SULFATE [Interacting]
     Active Substance: HYDROXYCHLOROQUINE SULFATE
     Route: 048
     Dates: start: 20161127, end: 20161127
  5. NIFEDIPINE [Interacting]
     Active Substance: NIFEDIPINE
     Indication: Blood pressure management
     Route: 065
  6. NIFEDIPINE [Interacting]
     Active Substance: NIFEDIPINE
     Route: 065
  7. THALIDOMIDE [Suspect]
     Active Substance: THALIDOMIDE
     Route: 065
     Dates: start: 20160613, end: 20160927
  8. THALIDOMIDE [Suspect]
     Active Substance: THALIDOMIDE
     Route: 065
     Dates: start: 20160928, end: 20161106
  9. THALIDOMIDE [Suspect]
     Active Substance: THALIDOMIDE
     Route: 065
     Dates: start: 20161107, end: 201611
  10. THALIDOMIDE [Suspect]
     Active Substance: THALIDOMIDE
     Route: 065
  11. ALPRAZOLAM [Suspect]
     Active Substance: ALPRAZOLAM
     Indication: Suicide attempt
     Route: 065
     Dates: start: 201611
  12. ALPRAZOLAM [Suspect]
     Active Substance: ALPRAZOLAM
     Indication: Psychotic disorder
     Route: 065
     Dates: start: 20161127, end: 20161127
  13. ALPRAZOLAM [Suspect]
     Active Substance: ALPRAZOLAM
     Route: 065
  14. ALPRAZOLAM [Suspect]
     Active Substance: ALPRAZOLAM
     Route: 065
     Dates: start: 20161107, end: 201611
  15. ALPRAZOLAM [Suspect]
     Active Substance: ALPRAZOLAM
  16. REVLIMID [Suspect]
     Active Substance: LENALIDOMIDE
     Indication: Product used for unknown indication
     Route: 065
  17. LENALIDOMIDE [Suspect]
     Active Substance: LENALIDOMIDE
     Indication: Chronic cutaneous lupus erythematosus
  18. THALIDOMIDE [Suspect]
     Active Substance: THALIDOMIDE
     Indication: Chronic cutaneous lupus erythematosus
     Route: 048
     Dates: start: 20161127, end: 20161127
  19. THALIDOMIDE [Suspect]
     Active Substance: THALIDOMIDE
     Route: 065
  20. THALIDOMIDE [Suspect]
     Active Substance: THALIDOMIDE
     Dates: start: 20160928, end: 20161106
  21. THALIDOMIDE [Suspect]
     Active Substance: THALIDOMIDE
     Dates: start: 20160613, end: 20160927
  22. THALIDOMIDE [Suspect]
     Active Substance: THALIDOMIDE
     Dates: start: 20161107, end: 201611
  23. THALIDOMIDE [Suspect]
     Active Substance: THALIDOMIDE
     Dates: start: 20161107, end: 201611
  24. ASPIRIN [Concomitant]
     Active Substance: ASPIRIN
     Route: 065
  25. ASPIRIN [Concomitant]
     Active Substance: ASPIRIN
  26. IMOVANE [Concomitant]
     Active Substance: ZOPICLONE
     Route: 065
  27. DUPHALAC [Concomitant]
     Active Substance: LACTULOSE
     Route: 065
  28. ACETAMINOPHEN [Concomitant]
     Active Substance: ACETAMINOPHEN
     Route: 065
  29. RISPERDAL [Concomitant]
     Active Substance: RISPERIDONE
     Route: 065
  30. RISPERDAL [Concomitant]
     Active Substance: RISPERIDONE
     Route: 065
  31. RISPERDAL [Concomitant]
     Active Substance: RISPERIDONE
     Route: 065
  32. MINERAL OIL [Concomitant]
     Active Substance: MINERAL OIL
     Route: 065
  33. XANAX [Concomitant]
     Active Substance: ALPRAZOLAM
  34. TROPATEPINE HYDROCHLORIDE [Concomitant]
     Active Substance: TROPATEPINE HYDROCHLORIDE
     Route: 065
  35. CANNABIS SATIVA SUBSP. INDICA TOP [Concomitant]
     Active Substance: CANNABIS SATIVA SUBSP. INDICA TOP
     Route: 065
  36. REVLIMID [Concomitant]
     Active Substance: LENALIDOMIDE
     Route: 065
  37. ASPIRIN [Concomitant]
     Active Substance: ASPIRIN
     Route: 065
     Dates: start: 20160613
  38. CHLORMADINONE ACETATE [Concomitant]
     Active Substance: CHLORMADINONE ACETATE
     Route: 065

REACTIONS (37)
  - Depressed mood [Unknown]
  - Major depression [Recovered/Resolved]
  - Delirium [Recovered/Resolved]
  - Persecutory delusion [Unknown]
  - Anxiety [Recovered/Resolved]
  - Thought blocking [Recovered/Resolved]
  - Hallucination, auditory [Unknown]
  - Confusional state [Recovered/Resolved]
  - Fall [Recovering/Resolving]
  - Foot fracture [Recovering/Resolving]
  - Parosmia [Recovered/Resolved]
  - Crying [Recovered/Resolved]
  - Disturbance in attention [Recovered/Resolved]
  - Sleep disorder [Recovered/Resolved]
  - Soliloquy [Recovered/Resolved]
  - Renal disorder [Recovering/Resolving]
  - Arthralgia [Unknown]
  - Contusion [Recovering/Resolving]
  - Somnolence [Recovered/Resolved]
  - Inappropriate affect [Recovered/Resolved]
  - Headache [Unknown]
  - Emotional disorder [Recovered/Resolved]
  - Psychotic disorder [Recovered/Resolved]
  - Suicide attempt [Unknown]
  - Nightmare [Unknown]
  - Suicidal ideation [Unknown]
  - Cardiac arrest [Recovering/Resolving]
  - Overdose [Unknown]
  - Drug intolerance [Recovered/Resolved]
  - Toxicity to various agents [Unknown]
  - Asthenia [Recovering/Resolving]
  - Orthostatic hypotension [Recovering/Resolving]
  - Drug interaction [Recovering/Resolving]
  - Back pain [Unknown]
  - Fatigue [Unknown]
  - Vertigo [Recovering/Resolving]
  - Visual impairment [Recovering/Resolving]

NARRATIVE: CASE EVENT DATE: 20151222
